FAERS Safety Report 20936401 (Version 1)
Quarter: 2022Q2

REPORT INFORMATION
  Report Type: Spontaneous
  Country: FR (occurrence: FR)
  Receive Date: 20220609
  Receipt Date: 20220609
  Transmission Date: 20220720
  Serious: Yes (Other)
  Sender: FDA-Public Use
  Company Number: None

PATIENT
  Age: 35 Year
  Sex: Female
  Weight: 75 kg

DRUGS (2)
  1. ALECENSA [Suspect]
     Active Substance: ALECTINIB HYDROCHLORIDE
     Indication: Lung adenocarcinoma
     Dosage: 600MG 2/J
     Route: 048
     Dates: start: 20210125
  2. PREDNISOLONE SODIUM METAZOATE [Suspect]
     Active Substance: PREDNISOLONE SODIUM METAZOATE
     Indication: Metastases to central nervous system
     Route: 048
     Dates: start: 20210224, end: 20220206

REACTIONS (1)
  - Fibroadenoma of breast [Not Recovered/Not Resolved]

NARRATIVE: CASE EVENT DATE: 20210701
